FAERS Safety Report 23973362 (Version 1)
Quarter: 2024Q2

REPORT INFORMATION
  Report Type: Spontaneous
  Country: US (occurrence: None)
  Receive Date: 20240613
  Receipt Date: 20240613
  Transmission Date: 20240715
  Serious: No
  Sender: FDA-Public Use
  Company Number: US-MDD US Operations-MDD202308-003448

PATIENT
  Age: 69 Year
  Sex: Male
  Weight: 65.31 kg

DRUGS (10)
  1. APOKYN [Suspect]
     Active Substance: APOMORPHINE HYDROCHLORIDE
     Indication: Parkinson^s disease
     Route: 058
  2. STALEVO [Concomitant]
     Active Substance: CARBIDOPA\ENTACAPONE\LEVODOPA
     Dosage: EACH DF OF 37.5MG/150MG/200MG
  3. CELEBREX [Concomitant]
     Active Substance: CELECOXIB
  4. KLONOPIN [Concomitant]
     Active Substance: CLONAZEPAM
  5. KEPPRA [Concomitant]
     Active Substance: LEVETIRACETAM
  6. KEPPRA [Concomitant]
     Active Substance: LEVETIRACETAM
  7. ZYVOX [Concomitant]
     Active Substance: LINEZOLID
  8. MELATONIN [Concomitant]
     Active Substance: MELATONIN
  9. MIRABEGRON [Concomitant]
     Active Substance: MIRABEGRON
  10. CLEAR LAX [Concomitant]
     Active Substance: POLYETHYLENE GLYCOL 3350
     Indication: Constipation

REACTIONS (1)
  - Injection site bruising [Recovered/Resolved]

NARRATIVE: CASE EVENT DATE: 20230101
